FAERS Safety Report 9693510 (Version 3)
Quarter: 2014Q1

REPORT INFORMATION
  Report Type: Report from Study
  Country: US (occurrence: US)
  Receive Date: 20131118
  Receipt Date: 20140210
  Transmission Date: 20141002
  Serious: Yes (Hospitalization, Disabling, Other)
  Sender: FDA-Public Use
  Company Number: US-ABBVIE-13P-163-1169451-00

PATIENT
  Age: 46 Year
  Sex: Female
  Weight: 138.47 kg

DRUGS (27)
  1. HUMIRA [Suspect]
     Indication: PYODERMA GANGRENOSUM
     Dates: start: 200909, end: 201107
  2. PREDNISONE [Suspect]
     Indication: PYODERMA GANGRENOSUM
  3. MULTIVITAMIN [Concomitant]
     Indication: VITAMIN SUPPLEMENTATION
  4. FISH OIL [Concomitant]
     Indication: VITAMIN SUPPLEMENTATION
  5. VITAMIN E [Concomitant]
     Indication: VITAMIN SUPPLEMENTATION
  6. VITAMIN C [Concomitant]
     Indication: VITAMIN SUPPLEMENTATION
  7. IRON [Concomitant]
     Indication: PRODUCT USED FOR UNKNOWN INDICATION
  8. VITAMIN B COMPLEX [Concomitant]
     Indication: VITAMIN SUPPLEMENTATION
  9. POTASSIUM [Concomitant]
     Indication: HYPOKALAEMIA
  10. CALCIUM [Concomitant]
     Indication: BONE DISORDER
  11. MAGNESIUM [Concomitant]
     Indication: MAGNESIUM DEFICIENCY
  12. EFFEXOR [Concomitant]
     Indication: DEPRESSION
  13. BUPROPION [Concomitant]
     Indication: DEPRESSION
  14. TOPROL [Concomitant]
     Indication: HYPERTENSION
  15. PRILOSEC [Concomitant]
     Indication: GASTRIC DISORDER
  16. HYDROCODONE [Concomitant]
     Indication: PAIN
  17. METHYL CARBINOL [Concomitant]
     Indication: MUSCLE RELAXANT THERAPY
  18. PENTOXIFYLLINE [Concomitant]
     Indication: PRODUCT USED FOR UNKNOWN INDICATION
  19. LASIX [Concomitant]
     Indication: FLUID RETENTION
  20. ZAROXOLYN [Concomitant]
     Indication: FLUID RETENTION
  21. COLCRYS [Concomitant]
     Indication: INFLAMMATION
  22. VESICARE [Concomitant]
     Indication: INCONTINENCE
  23. AMITRIPTYLINE [Concomitant]
     Indication: INSOMNIA
  24. ALLOPURINOL [Concomitant]
     Indication: POST THROMBOTIC SYNDROME
  25. CYCLOBENZAPRINE [Concomitant]
     Indication: MUSCLE RELAXANT THERAPY
  26. COUMADIN [Concomitant]
     Indication: ANTICOAGULANT THERAPY
  27. PROVERA [Concomitant]
     Indication: PRODUCT USED FOR UNKNOWN INDICATION

REACTIONS (11)
  - Diabetes mellitus [Not Recovered/Not Resolved]
  - Osteomyelitis [Recovered/Resolved with Sequelae]
  - Joint instability [Unknown]
  - Lower limb fracture [Recovered/Resolved with Sequelae]
  - Abasia [Unknown]
  - Osteomyelitis [Unknown]
  - Bone disorder [Unknown]
  - Pyrexia [Recovered/Resolved]
  - Skin ulcer [Recovering/Resolving]
  - Skin ulcer [Not Recovered/Not Resolved]
  - Off label use [Unknown]
